FAERS Safety Report 19502965 (Version 2)
Quarter: 2021Q3

REPORT INFORMATION
  Report Type: Spontaneous
  Country: US (occurrence: US)
  Receive Date: 20210707
  Receipt Date: 20210714
  Transmission Date: 20211014
  Serious: No
  Sender: FDA-Public Use
  Company Number: US-BEH-2021133701

PATIENT
  Sex: Female

DRUGS (4)
  1. ZEMAIRA [Suspect]
     Active Substance: .ALPHA.1-PROTEINASE INHIBITOR HUMAN
     Indication: ALPHA-1 ANTITRYPSIN DEFICIENCY
     Dosage: 60 MILLIGRAM, QW
     Route: 042
     Dates: start: 20200918
  2. ZEMAIRA [Suspect]
     Active Substance: .ALPHA.1-PROTEINASE INHIBITOR HUMAN
     Indication: ALPHA-1 ANTITRYPSIN DEFICIENCY
     Dosage: 60 MILLIGRAM, QW
     Route: 042
     Dates: start: 20200918
  3. ZEMAIRA [Suspect]
     Active Substance: .ALPHA.1-PROTEINASE INHIBITOR HUMAN
     Dosage: UNK, TOT
     Route: 042
     Dates: start: 20210628, end: 20210628
  4. ZEMAIRA [Suspect]
     Active Substance: .ALPHA.1-PROTEINASE INHIBITOR HUMAN
     Dosage: UNK, TOT
     Route: 042
     Dates: start: 20210628, end: 20210628

REACTIONS (3)
  - Pain [Unknown]
  - Nausea [Unknown]
  - Product temperature excursion issue [Unknown]
